FAERS Safety Report 11858790 (Version 2)
Quarter: 2025Q2

REPORT INFORMATION
  Report Type: Spontaneous
  Country: PL (occurrence: PL)
  Receive Date: 20151222
  Receipt Date: 20250415
  Transmission Date: 20250716
  Serious: Yes (Hospitalization, Other)
  Sender: GLENMARK
  Company Number: PL-GLENMARK PHARMACEUTICALS INC, USA.-2015GMK021137

PATIENT

DRUGS (1)
  1. MOMETASONE FUROATE [Suspect]
     Active Substance: MOMETASONE FUROATE
     Indication: Dermatitis atopic
     Route: 065

REACTIONS (3)
  - Cushing^s syndrome [Recovered/Resolved]
  - Intentional product misuse [Unknown]
  - Product use issue [Unknown]
